FAERS Safety Report 4457595-1 (Version None)
Quarter: 2004Q3

REPORT INFORMATION
  Report Type: 
  Country: None (occurrence: None)
  Receive Date: 20040921
  Receipt Date: 20040831
  Transmission Date: 20050211
  Serious: Yes (Hospitalization)
  Sender: FDA-Public Use
  Company Number: B0342332A

PATIENT
  Age: 40 Year
  Sex: Male

DRUGS (1)
  1. AUGMENTIN [Suspect]
     Indication: BRONCHITIS
     Dosage: 1 TABLET/TWICE PER DAY/ORAL
     Route: 048
     Dates: start: 20040805, end: 20040805

REACTIONS (3)
  - DYSPNOEA [None]
  - HYPERSENSITIVITY [None]
  - PHARMACEUTICAL PRODUCT COMPLAINT [None]
